FAERS Safety Report 4337383-7 (Version None)
Quarter: 2004Q2

REPORT INFORMATION
  Report Type: 
  Country: None (occurrence: None)
  Receive Date: 20040407
  Receipt Date: 20040330
  Transmission Date: 20050107
  Serious: Yes (Disabling)
  Sender: FDA-Public Use
  Company Number: K200400476

PATIENT
  Age: 17 Year
  Sex: Female

DRUGS (2)
  1. NORDETTE-21 [Suspect]
     Indication: ORAL CONTRACEPTION
     Dosage: 1 TABLET, QD, ORAL
     Route: 048
     Dates: start: 20030101, end: 20040303
  2. VENTOLIN /00139501/ (SALBUTAMOL) [Concomitant]

REACTIONS (1)
  - TELANGIECTASIA [None]
